FAERS Safety Report 20874217 (Version 1)
Quarter: 2022Q2

REPORT INFORMATION
  Report Type: Spontaneous
  Country: CN (occurrence: CN)
  Receive Date: 20220525
  Receipt Date: 20220525
  Transmission Date: 20220720
  Serious: Yes (Other)
  Sender: FDA-Public Use
  Company Number: CN-PFIZER INC-202200743971

PATIENT
  Age: 54 Year
  Sex: Female
  Weight: 56.2 kg

DRUGS (5)
  1. METHYLPREDNISOLONE SODIUM SUCCINATE [Suspect]
     Active Substance: METHYLPREDNISOLONE SODIUM SUCCINATE
     Indication: Sjogren^s syndrome
     Dosage: 40 MG, 1X/DAY
     Route: 041
     Dates: start: 20220426, end: 20220430
  2. PREDNISONE ACETATE [Suspect]
     Active Substance: PREDNISONE ACETATE
     Indication: Sjogren^s syndrome
     Dosage: 50 MG, 1X/DAY
     Route: 048
     Dates: start: 20220501, end: 20220509
  3. PREDNISONE ACETATE [Suspect]
     Active Substance: PREDNISONE ACETATE
     Dosage: 45 MG, 1X/DAY
     Route: 048
     Dates: start: 20220509, end: 20220519
  4. SODIUM CHLORIDE [Concomitant]
     Active Substance: SODIUM CHLORIDE
     Indication: Vehicle solution use
     Dosage: 100 ML, 1X/DAY
     Route: 041
     Dates: start: 20220426, end: 20220430
  5. HYDROXYCHLOROQUINE SULFATE [Concomitant]
     Active Substance: HYDROXYCHLOROQUINE SULFATE
     Indication: Sjogren^s syndrome
     Dosage: 0.2 G, 2X/DAY
     Route: 048
     Dates: start: 20220426, end: 20220519

REACTIONS (7)
  - Nephrogenic anaemia [Unknown]
  - Chronic kidney disease-mineral and bone disorder [Unknown]
  - Hyperkalaemia [Unknown]
  - Off label use [Unknown]
  - White blood cell count increased [Recovering/Resolving]
  - Neutrophil percentage increased [Unknown]
  - Oedema peripheral [Unknown]

NARRATIVE: CASE EVENT DATE: 20220426
